FAERS Safety Report 16259474 (Version 4)
Quarter: 2024Q2

REPORT INFORMATION
  Report Type: Other
  Country: US (occurrence: None)
  Receive Date: 20190501
  Receipt Date: 20240507
  Transmission Date: 20240716
  Serious: Yes (Hospitalization)
  Sender: FDA-Public Use
  Company Number: US-ROCHE-2309523

PATIENT
  Age: 62 Year
  Sex: Female
  Weight: 54.48 kg

DRUGS (14)
  1. OCREVUS [Suspect]
     Active Substance: OCRELIZUMAB
     Indication: Multiple sclerosis
     Dosage: ANTICIPATED DATE OF TREATMENT 22-MAY-2019?300 MG WEEK 0 AND WEEK 2 THEN 600 MG ONCE IN 6 MONTHS
     Route: 042
     Dates: start: 20181114
  2. OCREVUS [Suspect]
     Active Substance: OCRELIZUMAB
     Route: 042
     Dates: start: 201901
  3. AMPYRA [Concomitant]
     Active Substance: DALFAMPRIDINE
  4. NAMENDA XR [Concomitant]
     Active Substance: MEMANTINE HYDROCHLORIDE
  5. FOSAMAX [Concomitant]
     Active Substance: ALENDRONATE SODIUM
  6. NORVASC [Concomitant]
     Active Substance: AMLODIPINE BESYLATE
  7. LIORESAL [Concomitant]
     Active Substance: BACLOFEN
  8. AMPYRA [Concomitant]
     Active Substance: DALFAMPRIDINE
  9. LEXAPRO [Concomitant]
     Active Substance: ESCITALOPRAM OXALATE
  10. TOVIAZ [Concomitant]
     Active Substance: FESOTERODINE FUMARATE
  11. NEURONTIN [Concomitant]
     Active Substance: GABAPENTIN
  12. MACROBID [Concomitant]
     Active Substance: NITROFURANTOIN\NITROFURANTOIN MONOHYDRATE
  13. ZANAFLEX [Concomitant]
     Active Substance: TIZANIDINE HYDROCHLORIDE
  14. VESICARE [Concomitant]
     Active Substance: SOLIFENACIN SUCCINATE

REACTIONS (2)
  - Haematological infection [Unknown]
  - Gait inability [Unknown]
